FAERS Safety Report 7376595-5 (Version None)
Quarter: 2011Q1

REPORT INFORMATION
  Report Type: 
  Country: None (occurrence: None)
  Receive Date: 20110325
  Receipt Date: 20110316
  Transmission Date: 20110831
  Serious: Yes (Death, Other)
  Sender: FDA-Public Use
  Company Number: US-NAPPMUNDI-USA-2011-0065523

PATIENT
  Age: 36 Year
  Sex: Female

DRUGS (1)
  1. DILAUDID-HP [Suspect]
     Indication: PAIN
     Dosage: 16 MG, SINGLE
     Route: 042
     Dates: start: 20080501

REACTIONS (5)
  - NASOPHARYNGITIS [None]
  - INCORRECT DOSE ADMINISTERED [None]
  - DYSPNOEA [None]
  - OVERDOSE [None]
  - BRAIN INJURY [None]
